FAERS Safety Report 9700428 (Version 2)
Quarter: 2013Q4

REPORT INFORMATION
  Report Type: Report from Study
  Country: CA (occurrence: CA)
  Receive Date: 20131121
  Receipt Date: 20131219
  Transmission Date: 20140711
  Serious: Yes (Other)
  Sender: FDA-Public Use
  Company Number: CA-JNJFOC-20131109618

PATIENT
  Sex: Male
  Weight: 78.9 kg

DRUGS (9)
  1. REMICADE [Suspect]
     Indication: CROHN^S DISEASE
     Route: 042
     Dates: start: 20080923
  2. PENTASA [Concomitant]
     Route: 065
  3. SALOFALK [Concomitant]
     Route: 065
  4. FLAGYL [Concomitant]
     Dosage: ^CHRONIC^
     Route: 065
  5. CIPRO [Concomitant]
     Route: 065
  6. ADVIL [Concomitant]
     Route: 065
  7. TYLENOL [Concomitant]
     Route: 065
  8. ENTOCORT [Concomitant]
     Route: 065
  9. TYLENOL 3 [Concomitant]
     Route: 065

REACTIONS (2)
  - Fistula [Recovered/Resolved]
  - Abscess [Not Recovered/Not Resolved]
